FAERS Safety Report 6200192-8 (Version None)
Quarter: 2009Q2

REPORT INFORMATION
  Report Type: 
  Country: None (occurrence: None)
  Receive Date: 20090522
  Receipt Date: 20090510
  Transmission Date: 20091009
  Serious: Yes (Hospitalization, Other)
  Sender: FDA-Public Use
  Company Number: US-PFIZER INC-2007052685

PATIENT
  Sex: Female

DRUGS (6)
  1. CHANTIX [Suspect]
     Indication: SMOKING CESSATION THERAPY
     Dosage: 1 MG, 2X/DAY
     Route: 048
     Dates: start: 20070301
  2. PLAVIX [Concomitant]
  3. ACETYLSALICYLIC ACID [Concomitant]
  4. METOPROLOL SUCCINATE [Concomitant]
  5. ISOSORBIDE DINITRATE [Concomitant]
  6. LIPITOR [Concomitant]

REACTIONS (12)
  - BLOOD TRIGLYCERIDES INCREASED [None]
  - CHEST PAIN [None]
  - CORONARY ARTERY DISEASE [None]
  - DEPRESSED MOOD [None]
  - DEPRESSION [None]
  - FATIGUE [None]
  - FEELING ABNORMAL [None]
  - HYPERTENSION [None]
  - HYPOTHYROIDISM [None]
  - NAUSEA [None]
  - PSYCHOTIC DISORDER [None]
  - WEIGHT INCREASED [None]
